FAERS Safety Report 5229119-2 (Version None)
Quarter: 2007Q1

REPORT INFORMATION
  Report Type: 
  Country: None (occurrence: None)
  Receive Date: 20061201
  Receipt Date: 20060921
  Transmission Date: 20070707
  Serious: No
  Sender: FDA-Public Use
  Company Number: US200608004148

PATIENT
  Age: 45 Year
  Sex: Female
  Weight: 40.4 kg

DRUGS (5)
  1. CYMBALTA [Suspect]
     Indication: ANXIETY
     Dosage: SEE IMAGE
     Route: 048
     Dates: start: 20060601, end: 20060101
  2. PROZAC [Suspect]
     Dates: start: 20050101, end: 20050101
  3. ZYPREXA [Suspect]
     Indication: DEPRESSION
  4. KLONOPIN [Concomitant]
     Indication: DEPRESSION
     Dates: start: 20050101, end: 20050101
  5. . [Concomitant]

REACTIONS (7)
  - DISTURBANCE IN ATTENTION [None]
  - FEELING ABNORMAL [None]
  - HEADACHE [None]
  - NERVOUSNESS [None]
  - NIGHT SWEATS [None]
  - SOMNOLENCE [None]
  - WEIGHT DECREASED [None]
